FAERS Safety Report 20257871 (Version 1)
Quarter: 2021Q4

REPORT INFORMATION
  Report Type: Spontaneous
  Country: CA (occurrence: CA)
  Receive Date: 20211230
  Receipt Date: 20211230
  Transmission Date: 20220303
  Serious: Yes (Life-Threatening, Other)
  Sender: FDA-Public Use
  Company Number: CA-PFIZER INC-202101850020

PATIENT
  Age: 2 Year
  Sex: Male
  Weight: 15 kg

DRUGS (30)
  1. METHOTREXATE SODIUM [Suspect]
     Active Substance: METHOTREXATE SODIUM
     Indication: Prophylaxis against graft versus host disease
     Dosage: 3 MG
     Route: 041
  2. ETOPOSIDE [Suspect]
     Active Substance: ETOPOSIDE
     Indication: Transplant
     Dosage: 900 MG
     Route: 041
  3. ACYCLOVIR [Concomitant]
     Active Substance: ACYCLOVIR
  4. ALTEPLASE [Concomitant]
     Active Substance: ALTEPLASE
  5. AMLODIPINE [Concomitant]
     Active Substance: AMLODIPINE BESYLATE
     Route: 065
  6. AMOXICILLIN [Concomitant]
     Active Substance: AMOXICILLIN
  7. CEFTAZIDIME [Concomitant]
     Active Substance: CEFTAZIDIME
  8. CETIRIZINE [Concomitant]
     Active Substance: CETIRIZINE HYDROCHLORIDE
  9. CHOLECALCIFEROL [Concomitant]
     Active Substance: CHOLECALCIFEROL
  10. CYCLOSPORINE [Concomitant]
     Active Substance: CYCLOSPORINE
     Route: 065
  11. DEXAMETHASONE [Concomitant]
     Active Substance: DEXAMETHASONE
     Route: 065
  12. DIMENHYDRINATE [Concomitant]
     Active Substance: DIMENHYDRINATE
  13. DIPHENHYDRAMINE [Concomitant]
     Active Substance: DIPHENHYDRAMINE
  14. EPINEPHRINE [Concomitant]
     Active Substance: EPINEPHRINE
  15. FAMOTIDINE [Concomitant]
     Active Substance: FAMOTIDINE
  16. FLUCONAZOLE [Concomitant]
     Active Substance: FLUCONAZOLE
  17. HYDROCORTISONE [Concomitant]
     Active Substance: HYDROCORTISONE
  18. HYDROXYZINE [Concomitant]
     Active Substance: HYDROXYZINE HYDROCHLORIDE
  19. LEVOTHYROXINE [Concomitant]
     Active Substance: LEVOTHYROXINE
  20. MELATONIN [Concomitant]
     Active Substance: MELATONIN
  21. MEROPENEM [Concomitant]
     Active Substance: MEROPENEM
  22. METHADONE [Concomitant]
     Active Substance: METHADONE HYDROCHLORIDE
  23. METHYLPREDNISOLONE SODIUM SUCCINATE [Concomitant]
     Active Substance: METHYLPREDNISOLONE SODIUM SUCCINATE
  24. METRONIDAZOLE [Concomitant]
     Active Substance: METRONIDAZOLE
  25. ONDANSETRON [Concomitant]
     Active Substance: ONDANSETRON
  26. PENTAM [Concomitant]
     Active Substance: PENTAMIDINE ISETHIONATE
  27. PIPERACILLIN SODIUM\TAZOBACTAM SODIUM [Concomitant]
     Active Substance: PIPERACILLIN SODIUM\TAZOBACTAM SODIUM
  28. LAPINE T-LYMPHOCYTE IMMUNE GLOBULIN [Concomitant]
     Active Substance: LAPINE T-LYMPHOCYTE IMMUNE GLOBULIN
  29. TOBRAMYCIN [Concomitant]
     Active Substance: TOBRAMYCIN
  30. VANCOMYCIN [Concomitant]
     Active Substance: VANCOMYCIN

REACTIONS (3)
  - Mucosal inflammation [Unknown]
  - Radiation mucositis [Unknown]
  - Off label use [Unknown]
